FAERS Safety Report 4502970-X (Version None)
Quarter: 2004Q4

REPORT INFORMATION
  Report Type: 
  Country: None (occurrence: None)
  Receive Date: 20041117
  Receipt Date: 20041110
  Transmission Date: 20050328
  Serious: Yes (Hospitalization, Disabling)
  Sender: FDA-Public Use
  Company Number: JP-BRISTOL-MYERS SQUIBB COMPANY-12761789

PATIENT
  Age: 54 Year
  Sex: Male

DRUGS (2)
  1. BRIPLATIN [Suspect]
     Indication: OESOPHAGEAL SQUAMOUS CELL CARCINOMA
     Dosage: FIRST DOSE OF BRIPLATIN WAS 40 MG/M2 IN MAR-2001
     Route: 041
     Dates: start: 20010701
  2. 5-FU [Suspect]
     Indication: OESOPHAGEAL SQUAMOUS CELL CARCINOMA
     Dosage: FIRST DOE OF 5-FU WAS 400 MG/M2 OVER 20 DAYS IN MAR-2001
     Route: 041
     Dates: start: 20010701

REACTIONS (3)
  - LUNG ABSCESS [None]
  - OESOPHAGEAL PERFORATION [None]
  - OESOPHAGOBRONCHIAL FISTULA [None]
